FAERS Safety Report 8132337-7 (Version None)
Quarter: 2012Q1

REPORT INFORMATION
  Report Type: 
  Country: None (occurrence: None)
  Receive Date: 20120208
  Receipt Date: 20120127
  Transmission Date: 20120608
  Serious: Yes (Hospitalization)
  Sender: FDA-Public Use
  Company Number: JP-1187995

PATIENT
  Age: 55 Year
  Sex: Male

DRUGS (2)
  1. WARFARIN SODIUM [Concomitant]
  2. FLUORESCITE [Suspect]
     Indication: ANGIOGRAM RETINA
     Dosage: 500 MG INTRAVENOUS BOLUS
     Route: 040

REACTIONS (6)
  - ANAPHYLACTIC SHOCK [None]
  - HEPATIC INFARCTION [None]
  - NAUSEA [None]
  - ISCHAEMIC HEPATITIS [None]
  - VOMITING [None]
  - HEPATIC CIRRHOSIS [None]
